FAERS Safety Report 25155307 (Version 1)
Quarter: 2025Q2

REPORT INFORMATION
  Report Type: Spontaneous
  Country: US (occurrence: None)
  Receive Date: 20250403
  Receipt Date: 20250403
  Transmission Date: 20250716
  Serious: Yes (Hospitalization)
  Sender: FDA-CTU
  Company Number: None

PATIENT
  Sex: Female

DRUGS (10)
  1. TEZSPIRE [Suspect]
     Active Substance: TEZEPELUMAB-EKKO
     Indication: Asthma
     Dosage: FREQUENCY : MONTHLY;?
     Route: 058
     Dates: start: 20240329
  2. AIRSUPRA AER [Concomitant]
  3. ALBUTEROL AER HFA [Concomitant]
  4. ALPRAZOLAM [Concomitant]
     Active Substance: ALPRAZOLAM
  5. AMITIZA [Concomitant]
     Active Substance: LUBIPROSTONE
  6. ATORVASTATIN [Concomitant]
     Active Substance: ATORVASTATIN
  7. AZELASTINE SPR 0.1% [Concomitant]
  8. BENZONATATE [Concomitant]
     Active Substance: BENZONATATE
  9. BREZTRI AERO AER SPHERE [Concomitant]
  10. BUDESONIDE [Concomitant]
     Active Substance: BUDESONIDE

REACTIONS (4)
  - Asthma [None]
  - Dyspnoea [None]
  - Infection [None]
  - Impaired quality of life [None]
